FAERS Safety Report 6105470-9 (Version None)
Quarter: 2009Q1

REPORT INFORMATION
  Report Type: 
  Country: None (occurrence: None)
  Receive Date: 20090306
  Receipt Date: 20090302
  Transmission Date: 20090719
  Serious: Yes (Hospitalization)
  Sender: FDA-Public Use
  Company Number: A0769608A

PATIENT
  Age: 69 Year
  Sex: Female
  Weight: 43.1 kg

DRUGS (7)
  1. ADVAIR HFA [Suspect]
     Indication: ASTHMA
     Route: 055
  2. DILTIAZEM [Concomitant]
     Dosage: 60MG FOUR TIMES PER DAY
     Route: 065
     Dates: end: 20090201
  3. SYNTHROID [Concomitant]
     Dosage: 50MCG PER DAY
     Route: 065
  4. OMEPRAZOLE [Concomitant]
     Dosage: 20MG PER DAY
     Route: 065
  5. ASPIRIN [Concomitant]
     Dosage: 81MG PER DAY
     Route: 065
  6. GRAVOL TAB [Concomitant]
     Dosage: 50MG AS REQUIRED
     Route: 065
  7. VITAMIN B-12 [Concomitant]
     Route: 065

REACTIONS (4)
  - ADVERSE EVENT [None]
  - HYPOTENSION [None]
  - POSTURE ABNORMAL [None]
  - SECONDARY ADRENOCORTICAL INSUFFICIENCY [None]
